FAERS Safety Report 5263285-8 (Version None)
Quarter: 2007Q1

REPORT INFORMATION
  Report Type: 
  Country: None (occurrence: None)
  Receive Date: 20061219
  Receipt Date: 20061014
  Transmission Date: 20070707
  Serious: No
  Sender: FDA-Public Use
  Company Number: 2006US002371

PATIENT
  Age: 82 Year
  Sex: Female

DRUGS (1)
  1. VESICARE [Suspect]
     Indication: DRUG USE FOR UNKNOWN INDICATION
     Dosage: 5 MG
     Dates: start: 20061013

REACTIONS (2)
  - ABDOMINAL PAIN UPPER [None]
  - FEELING HOT [None]
